FAERS Safety Report 19246407 (Version 1)
Quarter: 2021Q2

REPORT INFORMATION
  Report Type: Spontaneous
  Country: US (occurrence: US)
  Receive Date: 20210511
  Receipt Date: 20210511
  Transmission Date: 20210717
  Serious: No
  Sender: FDA-Public Use
  Company Number: None

PATIENT
  Age: 48 Year
  Sex: Female

DRUGS (1)
  1. EFFEXOR XR (GENERIC) [Suspect]
     Active Substance: VENLAFAXINE HYDROCHLORIDE
     Indication: MULTIPLE SCLEROSIS

REACTIONS (2)
  - Drug ineffective [None]
  - Product substitution issue [None]
